FAERS Safety Report 25400832 (Version 1)
Quarter: 2025Q2

REPORT INFORMATION
  Report Type: Spontaneous
  Country: IT (occurrence: IT)
  Receive Date: 20250605
  Receipt Date: 20250605
  Transmission Date: 20250717
  Serious: Yes (Hospitalization)
  Sender: MYLAN
  Company Number: IT-MYLANLABS-2025M1046203

PATIENT
  Sex: Female

DRUGS (20)
  1. OCTREOTIDE [Suspect]
     Active Substance: OCTREOTIDE
     Indication: Chylothorax
     Dosage: 6 MICROGRAM/KILOGRAM  (6??G/KG/HOUR)
  2. OCTREOTIDE [Suspect]
     Active Substance: OCTREOTIDE
     Dosage: 6 MICROGRAM/KILOGRAM  (6??G/KG/HOUR)
  3. OCTREOTIDE [Suspect]
     Active Substance: OCTREOTIDE
     Dosage: 6 MICROGRAM/KILOGRAM  (6??G/KG/HOUR)
     Route: 042
  4. OCTREOTIDE [Suspect]
     Active Substance: OCTREOTIDE
     Dosage: 6 MICROGRAM/KILOGRAM  (6??G/KG/HOUR)
     Route: 042
  5. OCTREOTIDE [Suspect]
     Active Substance: OCTREOTIDE
  6. OCTREOTIDE [Suspect]
     Active Substance: OCTREOTIDE
  7. OCTREOTIDE [Suspect]
     Active Substance: OCTREOTIDE
     Route: 042
  8. OCTREOTIDE [Suspect]
     Active Substance: OCTREOTIDE
     Route: 042
  9. OCTREOTIDE [Suspect]
     Active Substance: OCTREOTIDE
     Dosage: 10 MICROGRAM/KILOGRAM, QH (REINSTATED AT THE MAXIMUM DOSAGE OF 10??G/KG/HOUR)
  10. OCTREOTIDE [Suspect]
     Active Substance: OCTREOTIDE
     Dosage: 10 MICROGRAM/KILOGRAM, QH (REINSTATED AT THE MAXIMUM DOSAGE OF 10??G/KG/HOUR)
     Route: 042
  11. OCTREOTIDE [Suspect]
     Active Substance: OCTREOTIDE
     Dosage: 10 MICROGRAM/KILOGRAM, QH (REINSTATED AT THE MAXIMUM DOSAGE OF 10??G/KG/HOUR)
  12. OCTREOTIDE [Suspect]
     Active Substance: OCTREOTIDE
     Dosage: 10 MICROGRAM/KILOGRAM, QH (REINSTATED AT THE MAXIMUM DOSAGE OF 10??G/KG/HOUR)
     Route: 042
  13. PROPRANOLOL [Concomitant]
     Active Substance: PROPRANOLOL HYDROCHLORIDE
     Indication: Product used for unknown indication
     Dosage: 1 MILLIGRAM/KILOGRAM, QD
  14. PROPRANOLOL [Concomitant]
     Active Substance: PROPRANOLOL HYDROCHLORIDE
     Dosage: 1 MILLIGRAM/KILOGRAM, QD
     Route: 065
  15. PROPRANOLOL [Concomitant]
     Active Substance: PROPRANOLOL HYDROCHLORIDE
     Dosage: 1 MILLIGRAM/KILOGRAM, QD
     Route: 065
  16. PROPRANOLOL [Concomitant]
     Active Substance: PROPRANOLOL HYDROCHLORIDE
     Dosage: 1 MILLIGRAM/KILOGRAM, QD
  17. FUROSEMIDE [Concomitant]
     Active Substance: FUROSEMIDE
     Indication: Chylothorax
     Dosage: 2 MILLIGRAM/KILOGRAM, QD
  18. FUROSEMIDE [Concomitant]
     Active Substance: FUROSEMIDE
     Dosage: 2 MILLIGRAM/KILOGRAM, QD
     Route: 042
  19. FUROSEMIDE [Concomitant]
     Active Substance: FUROSEMIDE
     Dosage: 2 MILLIGRAM/KILOGRAM, QD
     Route: 042
  20. FUROSEMIDE [Concomitant]
     Active Substance: FUROSEMIDE
     Dosage: 2 MILLIGRAM/KILOGRAM, QD

REACTIONS (2)
  - Drug ineffective [Unknown]
  - Off label use [Unknown]
